FAERS Safety Report 4852556-2 (Version None)
Quarter: 2005Q4

REPORT INFORMATION
  Report Type: 
  Country: None (occurrence: None)
  Receive Date: 20051123
  Receipt Date: 20040914
  Transmission Date: 20060501
  Serious: Yes (Hospitalization)
  Sender: FDA-Public Use
  Company Number: 04USA0215

PATIENT
  Age: 54 Year
  Sex: Female
  Weight: 78.4723 kg

DRUGS (6)
  1. GLIADEL [Suspect]
     Indication: GLIOBLASTOMA
     Dosage: INTRACEREBRAL
     Route: 018
     Dates: start: 20040612
  2. TEMODAL [Suspect]
     Indication: GLIOBLASTOMA
     Dosage: QD X 6 WK DATE GIVEN ? START OR END DATE?
     Dates: start: 20040612
  3. PHENOBARBITAL [Concomitant]
  4. DEXAMETHASONE [Concomitant]
  5. ONDANSETRON HYDROCHLORIDE [Concomitant]
  6. DIPHENHYDRAMINE HCL [Concomitant]

REACTIONS (2)
  - DEEP VEIN THROMBOSIS [None]
  - PULMONARY EMBOLISM [None]
